FAERS Safety Report 7081297-9 (Version None)
Quarter: 2010Q4

REPORT INFORMATION
  Report Type: 
  Country: None (occurrence: None)
  Receive Date: 20101103
  Receipt Date: 20101020
  Transmission Date: 20110411
  Serious: Yes (Other)
  Sender: FDA-Public Use
  Company Number: PHHY2010JP71917

PATIENT

DRUGS (1)
  1. RASILEZ [Suspect]
     Route: 048

REACTIONS (4)
  - ABDOMINAL SYMPTOM [None]
  - BLOOD POTASSIUM INCREASED [None]
  - DIARRHOEA [None]
  - RENAL IMPAIRMENT [None]
